FAERS Safety Report 5675075-2 (Version None)
Quarter: 2008Q1

REPORT INFORMATION
  Report Type: 
  Country: None (occurrence: None)
  Receive Date: 20080320
  Receipt Date: 20080316
  Transmission Date: 20080703
  Serious: Yes (Life-Threatening, Disabling, Other)
  Sender: FDA-Public Use
  Company Number: JP-ABBOTT-07P-087-0426655-00

PATIENT
  Sex: Female

DRUGS (22)
  1. AKINETON [Suspect]
     Indication: PARKINSONISM
     Route: 048
     Dates: start: 20050614, end: 20060613
  2. AKINETON [Suspect]
     Route: 048
     Dates: start: 20050329, end: 20050614
  3. AKINETON [Suspect]
     Route: 048
     Dates: start: 20050324, end: 20050329
  4. AKINETON [Suspect]
     Route: 048
     Dates: start: 20020101, end: 20050324
  5. PAROXETINE HCL [Suspect]
     Indication: DEPRESSED MOOD
     Route: 048
     Dates: start: 20050326, end: 20060613
  6. PAROXETINE HCL [Suspect]
     Route: 048
     Dates: start: 20050324, end: 20050326
  7. PAROXETINE HCL [Suspect]
     Dates: end: 20050324
  8. RISPERIDONE [Suspect]
     Indication: SCHIZOPHRENIA
     Route: 048
     Dates: start: 20050714, end: 20060613
  9. RISPERIDONE [Suspect]
     Route: 048
     Dates: start: 20050616, end: 20050704
  10. RISPERIDONE [Suspect]
     Dates: start: 20050312, end: 20050616
  11. RISPERIDONE [Suspect]
     Dates: start: 20050223, end: 20050302
  12. RISPERIDONE [Suspect]
     Dates: start: 20050215, end: 20050223
  13. RISPERIDONE [Suspect]
     Dates: end: 20050215
  14. OLANZAPINE [Suspect]
     Indication: SCHIZOPHRENIA
     Route: 048
     Dates: start: 20050804, end: 20060613
  15. OLANZAPINE [Suspect]
     Route: 048
     Dates: start: 20050728, end: 20050804
  16. TRIHEXYPHENIDYL HYDROCHLORIDE [Suspect]
     Indication: PARKINSONISM
     Route: 048
     Dates: start: 20050329, end: 20050613
  17. TRIHEXYPHENIDYL HYDROCHLORIDE [Suspect]
     Route: 048
     Dates: start: 20050324, end: 20050329
  18. TRIHEXYPHENIDYL HYDROCHLORIDE [Suspect]
     Route: 048
     Dates: start: 20050223, end: 20050324
  19. ALPRAZOLAM [Suspect]
     Indication: DRUG USE FOR UNKNOWN INDICATION
     Route: 048
     Dates: end: 20060612
  20. NOT REPORTED MEDICATION [Concomitant]
     Indication: DRUG USE FOR UNKNOWN INDICATION
  21. MILNACIPRAN HYDROCHLORIDE [Concomitant]
     Indication: DRUG USE FOR UNKNOWN INDICATION
  22. FLUVOXAMINE MALEATE [Concomitant]
     Indication: DRUG USE FOR UNKNOWN INDICATION

REACTIONS (10)
  - APALLIC SYNDROME [None]
  - BLOOD POTASSIUM DECREASED [None]
  - CARDIO-RESPIRATORY ARREST [None]
  - CEREBRAL INFARCTION [None]
  - DEPRESSED LEVEL OF CONSCIOUSNESS [None]
  - DEPRESSION [None]
  - INAPPROPRIATE ANTIDIURETIC HORMONE SECRETION [None]
  - MUSCLE RIGIDITY [None]
  - NEUROLEPTIC MALIGNANT SYNDROME [None]
  - RESTLESSNESS [None]
